FAERS Safety Report 6027972-6 (Version None)
Quarter: 2008Q4

REPORT INFORMATION
  Report Type: 
  Country: None (occurrence: None)
  Receive Date: 20081230
  Receipt Date: 20081210
  Transmission Date: 20090506
  Serious: Yes (Hospitalization)
  Sender: FDA-Public Use
  Company Number: URSO-2008-168

PATIENT
  Age: 20 Year
  Sex: Female

DRUGS (4)
  1. DELURSAN (URSODESOXYCHOLIC ACID) [Suspect]
     Indication: CHOLESTASIS
     Dosage: 500 MG
     Route: 048
     Dates: end: 20080815
  2. AUGMENTIN '125' [Suspect]
     Indication: PAIN
     Route: 048
     Dates: end: 20080801
  3. IMUREL [Suspect]
     Indication: AUTOIMMUNE HEPATITIS
     Dosage: 25 MG
     Route: 048
     Dates: end: 20080827
  4. NEORAL [Suspect]
     Indication: AUTOIMMUNE HEPATITIS
     Dosage: 50 MG
     Route: 048
     Dates: end: 20080827

REACTIONS (15)
  - ALANINE AMINOTRANSFERASE INCREASED [None]
  - ANAEMIA MACROCYTIC [None]
  - ANTI-HBS ANTIBODY POSITIVE [None]
  - ASPARTATE AMINOTRANSFERASE INCREASED [None]
  - C-REACTIVE PROTEIN INCREASED [None]
  - COAGULATION FACTOR DECREASED [None]
  - GAMMA-GLUTAMYLTRANSFERASE INCREASED [None]
  - HEPATIC ENZYME INCREASED [None]
  - INFLAMMATION [None]
  - JAUNDICE [None]
  - LEUKOPENIA [None]
  - PRURITUS [None]
  - PURPURA [None]
  - SMOOTH MUSCLE ANTIBODY POSITIVE [None]
  - TRANSAMINASES INCREASED [None]
